FAERS Safety Report 6550972-4 (Version None)
Quarter: 2010Q1

REPORT INFORMATION
  Report Type: 
  Country: None (occurrence: None)
  Receive Date: 20100122
  Receipt Date: 20100122
  Transmission Date: 20100710
  Serious: Yes (Life-Threatening)
  Sender: FDA-Public Use
  Company Number: None

PATIENT
  Age: 59 Year
  Sex: Female
  Weight: 83 kg

DRUGS (1)
  1. AZTREONAM [Suspect]
     Indication: PYELONEPHRITIS
     Dosage: 1 G Q8H IV
     Route: 042
     Dates: start: 20100118, end: 20100120

REACTIONS (6)
  - CHEST PAIN [None]
  - DYSPNOEA [None]
  - FLUSHING [None]
  - HYPERSENSITIVITY [None]
  - INFUSION RELATED REACTION [None]
  - PRURITUS [None]
